FAERS Safety Report 9256802 (Version 1)
Quarter: 2013Q2

REPORT INFORMATION
  Report Type: Spontaneous
  Country: SE (occurrence: None)
  Receive Date: 20130416
  Receipt Date: 20130416
  Transmission Date: 20140414
  Serious: Yes (Other)
  Sender: FDA-Public Use
  Company Number: 2013035404

PATIENT
  Age: 73 Year
  Sex: Male

DRUGS (3)
  1. HIZENTRA (IMMUNOGLOBULIN HUMAN NORMAL) [Suspect]
     Indication: BRONCHIECTASIS
     Route: 058
     Dates: start: 20130208, end: 20130208
  2. HIZENTRA (IMMUNOGLOBULIN HUMAN NORMAL) [Suspect]
     Indication: BLOOD IMMUNOGLOBULIN G DECREASED
     Route: 058
     Dates: start: 20130208, end: 20130208
  3. AZITHROMYCIN (AZITHROMYCIN) [Concomitant]

REACTIONS (4)
  - Erysipelas [None]
  - Erythema [None]
  - Pruritus [None]
  - Infusion site swelling [None]
